FAERS Safety Report 7298058-8 (Version None)
Quarter: 2011Q1

REPORT INFORMATION
  Report Type: 
  Country: None (occurrence: None)
  Receive Date: 20110217
  Receipt Date: 20110208
  Transmission Date: 20110831
  Serious: Yes (Death)
  Sender: FDA-Public Use
  Company Number: GB-JNJFOC-20100805355

PATIENT
  Age: 76 Year
  Sex: Female
  Weight: 88 kg

DRUGS (2)
  1. INFLIXIMAB, RECOMBINANT [Suspect]
     Indication: RHEUMATOID ARTHRITIS
     Route: 042
  2. ADALIMUMAB [Concomitant]

REACTIONS (5)
  - PERITONITIS [None]
  - TUBERCULOSIS GASTROINTESTINAL [None]
  - SKIN ULCER [None]
  - ILEAL PERFORATION [None]
  - RHEUMATOID ARTHRITIS [None]
